FAERS Safety Report 8366349-5 (Version None)
Quarter: 2012Q2

REPORT INFORMATION
  Report Type: 
  Country: None (occurrence: None)
  Receive Date: 20120517
  Receipt Date: 20120505
  Transmission Date: 20120825
  Serious: Yes (Other)
  Sender: FDA-Public Use
  Company Number: IT-TEVA-337679ISR

PATIENT
  Sex: Female

DRUGS (7)
  1. RISPERDAL [Suspect]
     Dosage: 18 MILLIGRAM;
     Route: 048
     Dates: start: 20120412, end: 20120412
  2. CLONAZEPAM [Suspect]
     Dosage: 40 GTT;
     Route: 048
     Dates: start: 20120412, end: 20120412
  3. IBRUPROFEN [Suspect]
     Route: 048
     Dates: start: 20120412, end: 20120412
  4. LORAZEPAM [Suspect]
     Dosage: 10 MILLIGRAM;
     Route: 048
     Dates: start: 20120412, end: 20120412
  5. FLUVOXAMINE MALEATE [Concomitant]
     Indication: PSYCHOTIC DISORDER
  6. LITHIUM CARBONATE [Suspect]
     Dosage: 1200 MILLIGRAM;
     Route: 048
     Dates: start: 20120412, end: 20120412
  7. DEPAKENE [Concomitant]
     Indication: PSYCHOTIC DISORDER

REACTIONS (3)
  - INCORRECT DOSE ADMINISTERED [None]
  - SOPOR [None]
  - SELF INJURIOUS BEHAVIOUR [None]
